FAERS Safety Report 21938088 (Version 2)
Quarter: 2023Q1

REPORT INFORMATION
  Report Type: Spontaneous
  Country: US (occurrence: US)
  Receive Date: 20230201
  Receipt Date: 20230213
  Transmission Date: 20230417
  Serious: No
  Sender: FDA-Public Use
  Company Number: US-PFIZER INC-202300041454

PATIENT
  Age: 79 Year
  Sex: Male
  Weight: 81.633 kg

DRUGS (2)
  1. NARDIL [Suspect]
     Active Substance: PHENELZINE SULFATE
     Indication: Major depression
     Dosage: 30 MG, 2X/DAY
  2. NARDIL [Suspect]
     Active Substance: PHENELZINE SULFATE
     Indication: Anxiety
     Dosage: 15 MG, 3X/DAY

REACTIONS (4)
  - Parkinsonian rest tremor [Not Recovered/Not Resolved]
  - Oedema peripheral [Recovered/Resolved]
  - Peripheral venous disease [Unknown]
  - COVID-19 [Unknown]
